FAERS Safety Report 11646395 (Version 2)
Quarter: 2016Q2

REPORT INFORMATION
  Report Type: Spontaneous
  Country: US (occurrence: US)
  Receive Date: 20151020
  Receipt Date: 20160429
  Transmission Date: 20160815
  Serious: No
  Sender: FDA-Public Use
  Company Number: US-ROCHE-1626225

PATIENT
  Age: 68 Year
  Sex: Male
  Weight: 89.89 kg

DRUGS (2)
  1. ESBRIET [Suspect]
     Active Substance: PIRFENIDONE
     Indication: IDIOPATHIC PULMONARY FIBROSIS
     Route: 048
     Dates: start: 20150520
  2. ESBRIET [Suspect]
     Active Substance: PIRFENIDONE
     Dosage: 2 TABS
     Route: 048
     Dates: start: 20150506

REACTIONS (7)
  - Headache [Unknown]
  - Nausea [Unknown]
  - Myalgia [Unknown]
  - Muscle twitching [Unknown]
  - Abdominal discomfort [Recovered/Resolved]
  - Anxiety [Unknown]
  - Decreased appetite [Unknown]

NARRATIVE: CASE EVENT DATE: 20150716
